FAERS Safety Report 8767019 (Version 2)
Quarter: 2013Q1

REPORT INFORMATION
  Report Type: Spontaneous
  Country: US (occurrence: US)
  Receive Date: 20120904
  Receipt Date: 20130227
  Transmission Date: 20140127
  Serious: Yes (Hospitalization, Other)
  Sender: FDA-Public Use
  Company Number: US-BAYER-2012-089531

PATIENT
  Age: 26 Year
  Sex: Female
  Weight: 177.78 kg

DRUGS (7)
  1. OCELLA [Suspect]
     Dosage: UNK
     Dates: start: 200506, end: 200910
  2. YASMIN [Suspect]
     Dosage: UNK
     Dates: start: 200506, end: 200910
  3. EFFEXOR XR [Concomitant]
     Indication: BIPOLAR II DISORDER
  4. WELLBUTRIN [Concomitant]
  5. UNIRETIC [Concomitant]
  6. HYDROXYZINE [Concomitant]
  7. ZYRTEC [Concomitant]

REACTIONS (9)
  - Cholecystitis chronic [None]
  - Gallbladder injury [None]
  - Injury [None]
  - Pain [None]
  - Emotional distress [None]
  - Pain [None]
  - General physical health deterioration [None]
  - Anxiety [None]
  - Scar [None]
